FAERS Safety Report 16894283 (Version 1)
Quarter: 2019Q4

REPORT INFORMATION
  Report Type: Spontaneous
  Country: CN (occurrence: CN)
  Receive Date: 20191008
  Receipt Date: 20191008
  Transmission Date: 20200122
  Serious: Yes (Other)
  Sender: FDA-Public Use
  Company Number: CN-009507513-1910CHN003802

PATIENT
  Age: 86 Year
  Sex: Male

DRUGS (4)
  1. SODIUM CHLORIDE. [Suspect]
     Active Substance: SODIUM CHLORIDE
     Dosage: 100 MILLILITER, Q8H (ALSO REPORTED AS TID); AS SOLVENT
     Route: 042
     Dates: start: 20190919, end: 20190923
  2. CEFOPERAZONE SODIUM (+) TAZOBACTAM SODIUM [Concomitant]
     Indication: ANTI-INFECTIVE THERAPY
     Dosage: 3 GRAM, Q8H
     Dates: start: 201909
  3. TIENAM [Suspect]
     Active Substance: CILASTATIN SODIUM\IMIPENEM
     Indication: PNEUMONIA
     Dosage: 1 GRAM, Q8H (ALSO REPORTED AS TID)
     Route: 042
     Dates: start: 20190919, end: 20190923
  4. SODIUM CHLORIDE. [Concomitant]
     Active Substance: SODIUM CHLORIDE
     Indication: ANTI-INFECTIVE THERAPY
     Dosage: 100 MILLILITER, Q8H
     Dates: start: 201909

REACTIONS (1)
  - Epilepsy [Recovering/Resolving]

NARRATIVE: CASE EVENT DATE: 20190923
